FAERS Safety Report 9011093 (Version 1)
Quarter: 2013Q1

REPORT INFORMATION
  Report Type: Spontaneous
  Country: JP (occurrence: JP)
  Receive Date: 20130109
  Receipt Date: 20130109
  Transmission Date: 20140127
  Serious: Yes (Other)
  Sender: FDA-Public Use
  Company Number: JP-ABBOTT-13P-087-1033734-00

PATIENT
  Age: 33 Year
  Sex: Female

DRUGS (31)
  1. CANDESARTAN CILEXETIL [Suspect]
     Indication: HYPERTENSION
     Route: 048
     Dates: end: 20100301
  2. TOCILIZUMAB [Suspect]
     Indication: RHEUMATOID ARTHRITIS
     Route: 042
     Dates: start: 20080902, end: 20080929
  3. TOCILIZUMAB [Suspect]
     Route: 042
     Dates: start: 20081021, end: 20090818
  4. TOCILIZUMAB [Suspect]
     Route: 042
     Dates: start: 20090915, end: 20100205
  5. TOCILIZUMAB [Suspect]
     Route: 042
     Dates: start: 20100402
  6. PREDNISOLONE [Concomitant]
     Indication: RHEUMATOID ARTHRITIS
     Route: 048
     Dates: start: 20081208
  7. PREDNISOLONE [Concomitant]
     Route: 064
     Dates: start: 20081209, end: 20090105
  8. PREDNISOLONE [Concomitant]
     Route: 064
     Dates: start: 20090106, end: 20090202
  9. PREDNISOLONE [Concomitant]
     Route: 064
     Dates: start: 20090203
  10. TAKEPRON [Concomitant]
     Indication: PROPHYLAXIS
     Route: 048
  11. ACTONEL [Concomitant]
     Indication: PROPHYLAXIS
     Route: 048
     Dates: start: 20080928
  12. ACTONEL [Concomitant]
     Route: 064
     Dates: start: 20080917, end: 20080923
  13. BIOFERMIN R [Concomitant]
     Indication: IRRITABLE BOWEL SYNDROME
     Route: 048
     Dates: end: 20080915
  14. NEOISCOTIN [Concomitant]
     Indication: ANTIBIOTIC PROPHYLAXIS
     Dosage: THE MOON AND TREE
     Route: 048
  15. PYRIDOXAL PHOSPHATE [Concomitant]
     Indication: PROPHYLAXIS
     Dosage: DRUG REPORTED AS: PYRIDOXAL CALCIUM PHOSPHATE
     Route: 048
  16. PRAVASTATIN SODIUM [Concomitant]
     Indication: HYPERLIPIDAEMIA
     Route: 048
  17. LASIX [Concomitant]
     Indication: HYPERTENSION
     Route: 048
  18. FERROMIA [Concomitant]
     Indication: IRON DEFICIENCY ANAEMIA
     Route: 048
     Dates: start: 20081209
  19. CALFINA [Concomitant]
     Indication: PROPHYLAXIS
     Route: 048
     Dates: start: 20090106
  20. LIPITOR [Concomitant]
     Indication: HYPERLIPIDAEMIA
     Route: 048
     Dates: end: 20100301
  21. AZULFIDINE EN [Concomitant]
     Indication: RHEUMATOID ARTHRITIS
     Route: 048
     Dates: end: 20080610
  22. AZULFIDINE EN [Concomitant]
     Route: 048
     Dates: start: 20080701, end: 20090903
  23. CLINORIL [Concomitant]
     Indication: RHEUMATOID ARTHRITIS
     Route: 048
     Dates: end: 20081206
  24. NU-LOTAN [Concomitant]
     Indication: HYPERTENSION
     Route: 048
     Dates: end: 20080925
  25. FERROUS FUMARATE [Concomitant]
     Indication: IRON DEFICIENCY ANAEMIA
     Route: 048
     Dates: end: 20081208
  26. FERROMIA [Concomitant]
     Indication: IRON DEFICIENCY ANAEMIA
     Route: 048
     Dates: start: 20081209
  27. TOYOFAROL [Concomitant]
     Indication: PROPHYLAXIS
     Route: 048
     Dates: end: 20090105
  28. EPOETIN ALFA [Concomitant]
     Indication: NEPHROGENIC ANAEMIA
     Route: 058
     Dates: end: 20090106
  29. FESIN [Concomitant]
     Indication: IRON DEFICIENCY ANAEMIA
     Route: 042
     Dates: start: 20081209, end: 20090106
  30. LIPITOR [Concomitant]
     Indication: HYPERLIPIDAEMIA
     Route: 048
     Dates: end: 20100301
  31. LOPEMIN [Concomitant]
     Indication: IRRITABLE BOWEL SYNDROME
     Route: 048
     Dates: end: 20080915

REACTIONS (2)
  - Foetal death [Unknown]
  - Uterine dilation and evacuation [Recovered/Resolved]
